FAERS Safety Report 11498089 (Version 2)
Quarter: 2015Q4

REPORT INFORMATION
  Report Type: Report from Study
  Country: AU (occurrence: AU)
  Receive Date: 20150911
  Receipt Date: 20151026
  Transmission Date: 20160304
  Serious: Yes (Other)
  Sender: FDA-Public Use
  Company Number: AU-PFIZER INC-2015291563

PATIENT

DRUGS (2)
  1. PHENYTOIN. [Suspect]
     Active Substance: PHENYTOIN
     Indication: EPILEPSY
     Dosage: 200 MG, DAILY
     Route: 064
  2. METHYLPHENOBARBITAL [Suspect]
     Active Substance: MEPHOBARBITAL
     Indication: EPILEPSY
     Dosage: 120 MG, DAILY
     Route: 064

REACTIONS (3)
  - Haemorrhage neonatal [Unknown]
  - Maternal exposure during pregnancy [Unknown]
  - Coagulation disorder neonatal [Unknown]
